FAERS Safety Report 10528036 (Version 1)
Quarter: 2014Q4

REPORT INFORMATION
  Report Type: Spontaneous
  Country: US (occurrence: None)
  Receive Date: 20141017
  Receipt Date: 20141017
  Transmission Date: 20150528
  Serious: No
  Sender: FDA-Public Use
  Company Number: None

PATIENT
  Age: 48 Year
  Sex: Female
  Weight: 62.6 kg

DRUGS (9)
  1. LEVOTHROID [Concomitant]
     Active Substance: LEVOTHYROXINE SODIUM
  2. ZOLOFT [Concomitant]
     Active Substance: SERTRALINE HYDROCHLORIDE
  3. PROLIA [Suspect]
     Active Substance: DENOSUMAB
     Indication: OSTEOPOROSIS
     Dosage: 1 MG EVERY 6 MONTHS INJECTION
     Dates: start: 20121029, end: 20131029
  4. ADVIL [Concomitant]
     Active Substance: IBUPROFEN
  5. CALCIUM [Concomitant]
     Active Substance: CALCIUM
  6. MVI [Concomitant]
     Active Substance: VITAMINS
  7. PROLIA [Suspect]
     Active Substance: DENOSUMAB
     Indication: BREAST CANCER
     Dosage: 1 MG EVERY 6 MONTHS INJECTION
     Dates: start: 20121029, end: 20131029
  8. XANAX [Concomitant]
     Active Substance: ALPRAZOLAM
  9. UNISOM SLEEPTABS [Concomitant]
     Active Substance: DOXYLAMINE SUCCINATE

REACTIONS (2)
  - Exostosis [None]
  - Oral disorder [None]

NARRATIVE: CASE EVENT DATE: 20121029
